FAERS Safety Report 6999908-2 (Version None)
Quarter: 2010Q3

REPORT INFORMATION
  Report Type: 
  Country: None (occurrence: None)
  Receive Date: 20100920
  Receipt Date: 20100607
  Transmission Date: 20110219
  Serious: No
  Sender: FDA-Public Use
  Company Number: US-ASTRAZENECA-2010SE26657

PATIENT

DRUGS (1)
  1. QUETIAPINE [Suspect]
     Indication: MENTAL DISORDER
     Dosage: LARGE DOSE
     Route: 048

REACTIONS (3)
  - FALL [None]
  - INCORRECT DOSE ADMINISTERED [None]
  - ORTHOSTATIC HYPOTENSION [None]
